FAERS Safety Report 11761473 (Version 2)
Quarter: 2015Q4

REPORT INFORMATION
  Report Type: Spontaneous
  Country: JP (occurrence: JP)
  Receive Date: 20151120
  Receipt Date: 20151201
  Transmission Date: 20160304
  Serious: Yes (Other)
  Sender: FDA-Public Use
  Company Number: JP-GLAXOSMITHKLINE-JP2015JPN148919

PATIENT
  Age: 31 Year
  Sex: Female
  Weight: 55 kg

DRUGS (7)
  1. DUAC GEL [Suspect]
     Active Substance: BENZOYL PEROXIDE\CLINDAMYCIN PHOSPHATE
     Indication: ACNE
     Dosage: UNK, QD
     Route: 050
     Dates: start: 20151006, end: 20151017
  2. TOUKISYAKUYAKUSAN [Concomitant]
     Indication: ACNE
     Dosage: 2.5 G, TID
     Dates: start: 20151006, end: 20151023
  3. TRANEXAMIC ACID. [Concomitant]
     Active Substance: TRANEXAMIC ACID
     Indication: ACNE
     Dosage: 250 MG, BID
     Dates: start: 20151006, end: 20151017
  4. DELUX-C [Concomitant]
     Indication: ACNE
     Dosage: 1.0 G, BID
     Dates: start: 20151006, end: 20151024
  5. PYRIDOXAL [Concomitant]
     Active Substance: PYRIDOXAL
     Indication: ACNE
     Dosage: UNK, BID
     Dates: start: 20151006, end: 20151024
  6. PYRIDOXINE HYDROCHLORIDE. [Concomitant]
     Active Substance: PYRIDOXINE HYDROCHLORIDE
     Indication: ACNE
     Dosage: 30 MG, BID
     Dates: start: 20151006, end: 20151017
  7. TRADITIONAL CHINESE MEDICINE [Concomitant]
     Active Substance: HERBALS
     Indication: ACNE
     Dosage: 2.5 G, TID
     Dates: start: 20151006, end: 20151030

REACTIONS (12)
  - Skin tightness [Recovering/Resolving]
  - Cutaneous symptom [Unknown]
  - Drug eruption [Recovering/Resolving]
  - Pruritus [Recovering/Resolving]
  - Erythema [Recovering/Resolving]
  - Swelling face [Recovered/Resolved]
  - Blister [Recovered/Resolved]
  - Feeling hot [Unknown]
  - Pain [Unknown]
  - Dermatitis contact [Unknown]
  - Erythema [Unknown]
  - Oesophagitis [Unknown]

NARRATIVE: CASE EVENT DATE: 20151016
